FAERS Safety Report 9999544 (Version 1)
Quarter: 2014Q1

REPORT INFORMATION
  Report Type: Spontaneous
  Country: US (occurrence: None)
  Receive Date: 20140311
  Receipt Date: 20140311
  Transmission Date: 20141002
  Serious: No
  Sender: FDA-Public Use
  Company Number: None

PATIENT
  Age: 70 Year
  Sex: Male
  Weight: 95.9 kg

DRUGS (1)
  1. DICLOFENAC [Suspect]
     Dates: start: 20130926, end: 20131107

REACTIONS (2)
  - Urticaria [None]
  - Pruritus [None]
